FAERS Safety Report 24164341 (Version 1)
Quarter: 2024Q3

REPORT INFORMATION
  Report Type: Spontaneous
  Country: US (occurrence: None)
  Receive Date: 20240801
  Receipt Date: 20240801
  Transmission Date: 20241016
  Serious: No
  Sender: Public
  Company Number: None

PATIENT

DRUGS (4)
  1. FISH OIL [Suspect]
     Active Substance: FISH OIL
  2. CLONIDINE [Suspect]
     Active Substance: CLONIDINE
  3. CLONIDINE [Suspect]
     Active Substance: CLONIDINE
  4. COLACE [Suspect]
     Active Substance: DOCUSATE SODIUM

REACTIONS (1)
  - Overdose [None]
